FAERS Safety Report 17113397 (Version 2)
Quarter: 2020Q1

REPORT INFORMATION
  Report Type: Spontaneous
  Country: BE (occurrence: BE)
  Receive Date: 20191205
  Receipt Date: 20200107
  Transmission Date: 20200409
  Serious: Yes (Other)
  Sender: FDA-Public Use
  Company Number: BE-ROCHE-2490111

PATIENT
  Age: 63 Year
  Sex: Male

DRUGS (3)
  1. BELLOZAL [Concomitant]
     Active Substance: BILASTINE
     Indication: PRODUCT USED FOR UNKNOWN INDICATION
     Dosage: UNK
     Route: 065
  2. XOLAIR [Suspect]
     Active Substance: OMALIZUMAB
     Route: 065
     Dates: start: 201909, end: 201911
  3. XOLAIR [Suspect]
     Active Substance: OMALIZUMAB
     Indication: URTICARIA
     Dosage: UNK
     Route: 065
     Dates: start: 201908

REACTIONS (5)
  - Folliculitis [Recovered/Resolved]
  - Renal impairment [Recovered/Resolved]
  - Erythema [Recovered/Resolved]
  - Dysgeusia [Recovered/Resolved]
  - Polydipsia [Unknown]
